FAERS Safety Report 20582720 (Version 1)
Quarter: 2022Q1

REPORT INFORMATION
  Report Type: Spontaneous
  Country: BR (occurrence: BR)
  Receive Date: 20220311
  Receipt Date: 20220311
  Transmission Date: 20220424
  Serious: Yes (Other)
  Sender: FDA-Public Use
  Company Number: BR-MLMSERVICE-20220224-3396605-1

PATIENT
  Age: 53 Year
  Sex: Female

DRUGS (3)
  1. MEROPENEM [Suspect]
     Active Substance: MEROPENEM
     Indication: COVID-19
     Dosage: UNK
  2. VANCOMYCIN [Suspect]
     Active Substance: VANCOMYCIN
     Indication: COVID-19
     Dosage: UNK
  3. POLYMYXIN B [Suspect]
     Active Substance: POLYMYXIN B
     Indication: COVID-19
     Dosage: UNK

REACTIONS (3)
  - Symmetrical drug-related intertriginous and flexural exanthema [Recovering/Resolving]
  - Dermatitis bullous [Recovering/Resolving]
  - Off label use [Unknown]
